FAERS Safety Report 5818724-8 (Version None)
Quarter: 2008Q3

REPORT INFORMATION
  Report Type: 
  Country: None (occurrence: None)
  Receive Date: 20080723
  Receipt Date: 20080718
  Transmission Date: 20090109
  Serious: Yes (Hospitalization)
  Sender: FDA-Public Use
  Company Number: DE-WYE-G01883908

PATIENT
  Sex: Male
  Weight: 84 kg

DRUGS (6)
  1. VENLAFAXINE HCL [Suspect]
     Dosage: 10 CAPSULES (OVERDOSE AMOUNT 750 MG)
     Route: 048
     Dates: start: 20080717, end: 20080717
  2. RAMIPRIL [Suspect]
     Dosage: OVERDOSE AMOUNT UNKNOWN
     Route: 048
     Dates: start: 20080717, end: 20080717
  3. MORPHINE [Suspect]
     Dosage: OVERDOSE AMOUNT UNKNOWN
     Route: 048
     Dates: start: 20080717, end: 20080717
  4. PANTOPRAZOLE SODIUM [Suspect]
     Dosage: OVERDOSE AMOUNT UNKNOWN
     Route: 048
     Dates: start: 20080717, end: 20080717
  5. BISOPROLOL FUMARATE [Suspect]
     Dosage: OVERDOSE AMOUNT UNKNOWN
     Route: 048
     Dates: start: 20080717, end: 20080717
  6. ESIDRIX [Suspect]
     Dosage: OVERDOSE AMOUNT UNKNOWN
     Route: 048
     Dates: start: 20080717, end: 20080717

REACTIONS (2)
  - INTENTIONAL OVERDOSE [None]
  - SUICIDE ATTEMPT [None]
